FAERS Safety Report 5244999-2 (Version None)
Quarter: 2007Q1

REPORT INFORMATION
  Report Type: 
  Country: None (occurrence: None)
  Receive Date: 20070223
  Receipt Date: 20070212
  Transmission Date: 20070707
  Serious: Yes (Hospitalization)
  Sender: FDA-Public Use
  Company Number: PHRM2007FR00796

PATIENT
  Age: 69 Year
  Sex: Male

DRUGS (5)
  1. PAROXETINE HCL [Suspect]
     Indication: DEPRESSION
     Dosage: 40 MG/DAY
     Route: 048
     Dates: start: 20030101, end: 20061025
  2. RISPERDAL [Concomitant]
     Indication: DEPRESSION
     Route: 048
     Dates: start: 20061201, end: 20061225
  3. AMLODIPINE [Concomitant]
     Route: 048
  4. SECTRAL [Concomitant]
     Route: 048
  5. TEGRETOL [Suspect]
     Indication: DEPRESSION
     Dosage: 400 MG, QD
     Route: 048
     Dates: start: 20030101

REACTIONS (6)
  - BLOOD OSMOLARITY DECREASED [None]
  - BLOOD SODIUM DECREASED [None]
  - BLOOD URIC ACID DECREASED [None]
  - BRUGADA SYNDROME [None]
  - HYPONATRAEMIA [None]
  - SYNCOPE [None]
